FAERS Safety Report 8990510 (Version 2)
Quarter: 2013Q1

REPORT INFORMATION
  Report Type: Report from Study
  Country: US (occurrence: US)
  Receive Date: 20121228
  Receipt Date: 20130318
  Transmission Date: 20140127
  Serious: Yes (Other)
  Sender: FDA-Public Use
  Company Number: US-PURDUE-USA-2012-0097224

PATIENT
  Sex: Female
  Weight: 176 kg

DRUGS (1)
  1. OXYCONTIN (NDA 22-272) [Suspect]
     Indication: PAIN
     Dosage: 40 MG, Q12H
     Route: 048
     Dates: start: 20091125

REACTIONS (3)
  - Kidney infection [Not Recovered/Not Resolved]
  - Haematuria [Recovered/Resolved]
  - Confusional state [Unknown]
